FAERS Safety Report 26107379 (Version 1)
Quarter: 2025Q4

REPORT INFORMATION
  Report Type: Spontaneous
  Country: CN (occurrence: CN)
  Receive Date: 20251201
  Receipt Date: 20251201
  Transmission Date: 20260118
  Serious: Yes (Other)
  Sender: PFIZER
  Company Number: CN-PFIZER INC-PV202500138200

PATIENT
  Age: 66 Year
  Sex: Male

DRUGS (1)
  1. LINEZOLID [Suspect]
     Active Substance: LINEZOLID
     Indication: Squamous cell carcinoma of lung
     Dosage: 0.6 G, 2X/DAY
     Route: 041
     Dates: start: 20250609, end: 20250609

REACTIONS (5)
  - Arthralgia [Recovering/Resolving]
  - Chest discomfort [Recovered/Resolved]
  - Oedema peripheral [Recovering/Resolving]
  - Musculoskeletal chest pain [Recovering/Resolving]
  - Abdominal pain upper [Recovering/Resolving]

NARRATIVE: CASE EVENT DATE: 20250609
